FAERS Safety Report 22177155 (Version 2)
Quarter: 2023Q2

REPORT INFORMATION
  Report Type: Report from Study
  Country: US (occurrence: US)
  Receive Date: 20230405
  Receipt Date: 20230510
  Transmission Date: 20230721
  Serious: Yes (Hospitalization)
  Sender: FDA-Public Use
  Company Number: US-TAKEDA-2022TUS056473

PATIENT
  Sex: Male

DRUGS (3)
  1. MARIBAVIR [Suspect]
     Active Substance: MARIBAVIR
     Indication: Cytomegalovirus infection
     Dosage: 400 MILLIGRAM, BID
     Route: 048
     Dates: start: 20220809
  2. MARIBAVIR [Suspect]
     Active Substance: MARIBAVIR
     Indication: Post procedural infection
     Dosage: 400 MILLIGRAM, BID
     Route: 048
  3. VALCYTE [Suspect]
     Active Substance: VALGANCICLOVIR HYDROCHLORIDE
     Indication: Product used for unknown indication
     Dosage: UNK
     Route: 065

REACTIONS (8)
  - Pleural effusion [Unknown]
  - Influenza [Unknown]
  - Neck mass [Unknown]
  - Lymphadenopathy [Unknown]
  - White blood cell count decreased [Unknown]
  - Dyspnoea [Unknown]
  - Dysgeusia [Recovering/Resolving]
  - Product distribution issue [Unknown]
